FAERS Safety Report 24132941 (Version 1)
Quarter: 2024Q3

REPORT INFORMATION
  Report Type: Spontaneous
  Country: US (occurrence: US)
  Receive Date: 20240724
  Receipt Date: 20240724
  Transmission Date: 20241016
  Serious: No
  Sender: Unknown Manufacturer
  Company Number: US-ACELLA PHARMACEUTICALS, LLC-2024ALO00097

PATIENT
  Sex: Female

DRUGS (2)
  1. ESTRADIOL [Suspect]
     Active Substance: ESTRADIOL
     Indication: Blood oestrogen decreased
     Dosage: 0.25 MG, 1X/DAY
     Dates: start: 20240325, end: 2024
  2. ESTRADIOL [Suspect]
     Active Substance: ESTRADIOL
     Dosage: 0.25 MG, 1X/DAY EARLIER IN THE DAY
     Dates: start: 2024

REACTIONS (4)
  - Head discomfort [Unknown]
  - Vision blurred [Unknown]
  - Disturbance in attention [Unknown]
  - Reaction to excipient [Not Recovered/Not Resolved]

NARRATIVE: CASE EVENT DATE: 20240101
